FAERS Safety Report 8255543-X (Version None)
Quarter: 2012Q2

REPORT INFORMATION
  Report Type: 
  Country: None (occurrence: None)
  Receive Date: 20120403
  Receipt Date: 20120329
  Transmission Date: 20120825
  Serious: Yes (Other)
  Sender: FDA-Public Use
  Company Number: US-PFIZER INC-2012081478

PATIENT
  Sex: Male

DRUGS (3)
  1. LIPITOR [Suspect]
     Dosage: 80 MG, 1 QHS
  2. ASPIRIN [Concomitant]
     Dosage: 325 MG, DAILY
  3. ZANTAC [Concomitant]
     Dosage: 300 MG, 2X/DAY

REACTIONS (1)
  - BLOOD PRESSURE ABNORMAL [None]
